FAERS Safety Report 7547585-4 (Version None)
Quarter: 2011Q2

REPORT INFORMATION
  Report Type: 
  Country: None (occurrence: None)
  Receive Date: 20110614
  Receipt Date: 20110602
  Transmission Date: 20111010
  Serious: Yes (Other)
  Sender: FDA-Public Use
  Company Number: PHHY2010US14181

PATIENT
  Sex: Female

DRUGS (7)
  1. GLEEVEC [Suspect]
     Dosage: 400 MG, DAILY WITH FOOD
     Route: 048
     Dates: start: 20090620
  2. VITAMIN E [Concomitant]
     Dosage: UNK UKN, UNK
  3. GLEEVEC [Suspect]
     Indication: CHRONIC MYELOID LEUKAEMIA
     Dosage: 400 MG, QD
     Route: 048
     Dates: start: 20090601
  4. GLEEVEC [Suspect]
     Dosage: 400 MG, DAILY
     Route: 048
     Dates: start: 20090619
  5. GLEEVEC [Suspect]
     Dosage: 400 MG, DAILY
     Route: 048
     Dates: start: 20110504
  6. EFFEXOR [Concomitant]
     Dosage: UNK UKN, UNK
  7. MULTI-VITAMINS [Concomitant]
     Dosage: UNK UKN, UNK

REACTIONS (10)
  - MYALGIA [None]
  - NERVE COMPRESSION [None]
  - PERIORBITAL OEDEMA [None]
  - PAIN [None]
  - ARTHRITIS [None]
  - BONE PAIN [None]
  - RASH [None]
  - MUSCLE SPASMS [None]
  - DIARRHOEA [None]
  - CONSTIPATION [None]
